FAERS Safety Report 25794222 (Version 1)
Quarter: 2025Q3

REPORT INFORMATION
  Report Type: Spontaneous
  Country: EU (occurrence: EU)
  Receive Date: 20250912
  Receipt Date: 20250912
  Transmission Date: 20251021
  Serious: Yes (Hospitalization)
  Sender: ROCHE
  Company Number: None

PATIENT
  Age: 78 Year
  Sex: Male

DRUGS (1)
  1. XOLAIR [Suspect]
     Active Substance: OMALIZUMAB
     Indication: Pemphigoid
     Dosage: 450 MG, BIW (450 MG EVERY 15 DAYS (THIS IS AN INCREASE IN DOSAGE))
     Route: 058
     Dates: start: 20250326

REACTIONS (2)
  - Condition aggravated [Recovering/Resolving]
  - Pemphigoid [Recovering/Resolving]
